FAERS Safety Report 9727093 (Version 2)
Quarter: 2013Q4

REPORT INFORMATION
  Report Type: Spontaneous
  Country: NL (occurrence: NL)
  Receive Date: 20131203
  Receipt Date: 20131203
  Transmission Date: 20140711
  Serious: Yes (Hospitalization)
  Sender: FDA-Public Use
  Company Number: NL-MALLINCKRODT-T201304747

PATIENT
  Age: 44 Year
  Sex: Female

DRUGS (6)
  1. OPTIRAY [Suspect]
     Indication: COMPUTERISED TOMOGRAM
     Dosage: 69 ML, SINGLE, AT 3 ML/SEC
     Route: 042
     Dates: start: 20131031, end: 20131031
  2. MIRENA [Concomitant]
  3. METRONIDAZOL                       /00012501/ [Concomitant]
  4. TRAMADOL [Concomitant]
  5. MAGNESIUM SULPHATE                 /07507001/ [Concomitant]
  6. LOPERAMIDE [Concomitant]

REACTIONS (1)
  - Anaphylactic reaction [Recovered/Resolved]
